FAERS Safety Report 15647916 (Version 1)
Quarter: 2018Q4

REPORT INFORMATION
  Report Type: Spontaneous
  Country: TR (occurrence: TR)
  Receive Date: 20181122
  Receipt Date: 20181122
  Transmission Date: 20190205
  Serious: Yes (Death, Congenital Anomaly, Other)
  Sender: FDA-Public Use
  Company Number: TR-MACLEODS PHARMACEUTICALS US LTD-MAC2018018755

PATIENT

DRUGS (7)
  1. PRAMIPEXOLE. [Suspect]
     Active Substance: PRAMIPEXOLE
     Indication: PARKINSON^S DISEASE
     Dosage: 1.5 MILLIGRAM, QD DURING ONSET OF PREGNANCY
     Route: 064
  2. RASAGILINE. [Suspect]
     Active Substance: RASAGILINE
     Dosage: 1 MILLIGRAM, QD (0-5 WEEKS) DURING FIRST TRIMESTER
     Route: 064
  3. PRAMIPEXOLE. [Suspect]
     Active Substance: PRAMIPEXOLE
     Dosage: 0.75 MILLIGRAM, QD (5-12 WEEKS) DURING FIRST TRIMESTER
     Route: 064
  4. RASAGILINE. [Suspect]
     Active Substance: RASAGILINE
     Indication: PARKINSON^S DISEASE
     Dosage: 1 MILLIGRAM, QD DURING ONSET OF PREGNANCY
     Route: 064
  5. PRAMIPEXOLE. [Suspect]
     Active Substance: PRAMIPEXOLE
     Dosage: 0.75 MILLIGRAM, QD DURING THIRD TRIMESTER
     Route: 064
  6. PRAMIPEXOLE. [Suspect]
     Active Substance: PRAMIPEXOLE
     Dosage: 1.5 MILLIGRAM, QD DURING FIRST TRIMESTER
     Route: 064
  7. PRAMIPEXOLE. [Suspect]
     Active Substance: PRAMIPEXOLE
     Dosage: 0.75 MILLIGRAM, QD DURING SECOND TRIMESTER
     Route: 064

REACTIONS (2)
  - Hepatic failure [Fatal]
  - Foetal exposure during pregnancy [Unknown]
